FAERS Safety Report 9580079 (Version 1)
Quarter: 2013Q3

REPORT INFORMATION
  Report Type: Spontaneous
  Country: US (occurrence: None)
  Receive Date: 20130930
  Receipt Date: 20130930
  Transmission Date: 20140515
  Serious: Yes (Hospitalization)
  Sender: FDA-Public Use
  Company Number: None

PATIENT
  Age: 37 Year
  Sex: Female
  Weight: 65.77 kg

DRUGS (1)
  1. HUMIRA [Suspect]
     Indication: UVEITIS
     Dates: start: 20130716, end: 20130910

REACTIONS (3)
  - Suicidal ideation [None]
  - Hypoaesthesia [None]
  - Pain in extremity [None]
